FAERS Safety Report 5830393-X (Version None)
Quarter: 2008Q3

REPORT INFORMATION
  Report Type: 
  Country: None (occurrence: None)
  Receive Date: 20080801
  Receipt Date: 20080724
  Transmission Date: 20090109
  Serious: Yes (Hospitalization)
  Sender: FDA-Public Use
  Company Number: FR-SANOFI-SYNTHELABO-F01200501504

PATIENT
  Sex: Female

DRUGS (3)
  1. FOLINIC ACID [Suspect]
     Route: 042
     Dates: start: 20050707, end: 20050708
  2. FLUOROURACIL [Suspect]
     Dosage: 600MG BOLUS THEN 900MG CONTINUOUS INFUSION OVER 22 HOURS
     Route: 042
     Dates: start: 20050707, end: 20050708
  3. OXALIPLATIN [Suspect]
     Indication: COLON CANCER
     Route: 042
     Dates: start: 20050707, end: 20050707

REACTIONS (1)
  - CHEST PAIN [None]
